FAERS Safety Report 25091006 (Version 1)
Quarter: 2025Q1

REPORT INFORMATION
  Report Type: Report from Study
  Country: CA (occurrence: CA)
  Receive Date: 20250318
  Receipt Date: 20250318
  Transmission Date: 20250409
  Serious: No
  Sender: TAKEDA
  Company Number: CA-TAKEDA-2024TUS050270

PATIENT
  Sex: Female

DRUGS (7)
  1. HUMAN IMMUNOGLOBULIN G\HYALURONIDASE RECOMBINANT HUMAN [Suspect]
     Active Substance: HUMAN IMMUNOGLOBULIN G\HYALURONIDASE (HUMAN RECOMBINANT)
     Indication: Secondary immunodeficiency
     Dosage: 32.5 GRAM, Q4WEEKS
     Dates: start: 20240508
  2. HUMAN IMMUNOGLOBULIN G\HYALURONIDASE RECOMBINANT HUMAN [Suspect]
     Active Substance: HUMAN IMMUNOGLOBULIN G\HYALURONIDASE (HUMAN RECOMBINANT)
     Dosage: 32.5 GRAM, Q4WEEKS
  3. HUMAN IMMUNOGLOBULIN G\HYALURONIDASE RECOMBINANT HUMAN [Suspect]
     Active Substance: HUMAN IMMUNOGLOBULIN G\HYALURONIDASE (HUMAN RECOMBINANT)
     Dosage: 32.5 GRAM, Q4WEEKS
  4. TALQUETAMAB [Concomitant]
     Active Substance: TALQUETAMAB
  5. POMALYST [Concomitant]
     Active Substance: POMALIDOMIDE
  6. DARATUMUMAB [Concomitant]
     Active Substance: DARATUMUMAB
  7. ACYCLOVIR [Concomitant]
     Active Substance: ACYCLOVIR

REACTIONS (5)
  - Infusion site rash [Recovering/Resolving]
  - Nausea [Recovered/Resolved]
  - Infusion site pain [Recovering/Resolving]
  - Fatigue [Unknown]
  - Infusion site discomfort [Unknown]
